FAERS Safety Report 9753806 (Version 4)
Quarter: 2014Q1

REPORT INFORMATION
  Report Type: Spontaneous
  Country: FR (occurrence: FR)
  Receive Date: 20131213
  Receipt Date: 20140311
  Transmission Date: 20141002
  Serious: Yes (Other)
  Sender: FDA-Public Use
  Company Number: PHHY2013FR139265

PATIENT
  Age: 66 Year
  Sex: Male

DRUGS (5)
  1. METFORMIN SANDOZ [Suspect]
     Indication: DIABETES MELLITUS
     Dosage: 0.5 DF, TID
     Route: 048
     Dates: start: 201211, end: 201312
  2. KARDEGIC [Concomitant]
     Dosage: 1 DF, QD
  3. ALLOPURINOL [Concomitant]
     Dosage: 1 DF, QD
  4. TWYNSTA [Concomitant]
     Dosage: 1 DF, QD
  5. DOLIPRANE [Concomitant]
     Dosage: 1 DF, TID

REACTIONS (2)
  - Drug prescribing error [Not Recovered/Not Resolved]
  - Diabetes mellitus inadequate control [Not Recovered/Not Resolved]
